FAERS Safety Report 6672047-6 (Version None)
Quarter: 2010Q2

REPORT INFORMATION
  Report Type: 
  Country: None (occurrence: None)
  Receive Date: 20100406
  Receipt Date: 20100325
  Transmission Date: 20101027
  Serious: Yes (Hospitalization)
  Sender: FDA-Public Use
  Company Number: 009331

PATIENT
  Sex: Male

DRUGS (6)
  1. KEPPRA [Suspect]
     Indication: EPILEPSY
     Dosage: ORAL
     Route: 048
     Dates: start: 20091101, end: 20091126
  2. CLAMOXYL /00249601/ (CLAMOXYL) (NOT SPECIFIED) [Suspect]
     Indication: ENDOCARDITIS
     Dates: start: 20091101, end: 20091201
  3. LOVENOX [Concomitant]
  4. DOLIPRANE [Concomitant]
  5. SPIFEN [Concomitant]
  6. VASTAREL [Concomitant]

REACTIONS (2)
  - NEUTROPHIL COUNT DECREASED [None]
  - WHITE BLOOD CELL COUNT DECREASED [None]
